FAERS Safety Report 7565783-0 (Version None)
Quarter: 2011Q2

REPORT INFORMATION
  Report Type: 
  Country: None (occurrence: None)
  Receive Date: 20110616
  Receipt Date: 20110603
  Transmission Date: 20111010
  Serious: Yes (Hospitalization, Other)
  Sender: FDA-Public Use
  Company Number: 2010SP009225

PATIENT
  Age: 36 Year
  Sex: Female

DRUGS (3)
  1. LISINOPRIL [Concomitant]
  2. NUVARING [Suspect]
     Indication: CONTRACEPTION
     Dates: start: 20040901, end: 20080201
  3. TRIAMTERENE [Concomitant]

REACTIONS (19)
  - LEIOMYOMA [None]
  - INTRACARDIAC THROMBUS [None]
  - APNOEA [None]
  - FATIGUE [None]
  - MENSTRUATION IRREGULAR [None]
  - UTERINE CYST [None]
  - LEFT VENTRICULAR HYPERTROPHY [None]
  - MITRAL VALVE INCOMPETENCE [None]
  - SNORING [None]
  - TRICUSPID VALVE INCOMPETENCE [None]
  - SOMNOLENCE [None]
  - NASAL CONGESTION [None]
  - OVARIAN CYST [None]
  - ACUTE MYOCARDIAL INFARCTION [None]
  - UTERINE LEIOMYOMA [None]
  - LIPOPROTEIN (A) INCREASED [None]
  - CARDIAC FAILURE CONGESTIVE [None]
  - DIASTOLIC DYSFUNCTION [None]
  - DYSLIPIDAEMIA [None]
